FAERS Safety Report 19868301 (Version 1)
Quarter: 2021Q3

REPORT INFORMATION
  Report Type: Spontaneous
  Country: US (occurrence: US)
  Receive Date: 20210921
  Receipt Date: 20210921
  Transmission Date: 20211014
  Serious: No
  Sender: FDA-Public Use
  Company Number: US-BRAINTREE LABORATORIES, INC.-2021BTE00655

PATIENT
  Age: 80 Year
  Sex: Female
  Weight: 42.18 kg

DRUGS (3)
  1. SUPREP BOWEL PREP [Suspect]
     Active Substance: MAGNESIUM SULFATE\POTASSIUM SULFATE\SODIUM SULFATE
     Indication: COLONOSCOPY
     Dosage: { 0.5 X 6 OZ. BOTTLE, 1X
     Route: 048
     Dates: start: 20210729, end: 20210729
  2. SYNTHROID [Concomitant]
     Active Substance: LEVOTHYROXINE SODIUM
  3. FENTANYL. [Concomitant]
     Active Substance: FENTANYL
     Dosage: UNK, EVERY 72 HOURS (EVERY 3 DAYS)

REACTIONS (3)
  - Vomiting [Recovered/Resolved]
  - Palpitations [Recovered/Resolved]
  - Vertigo [Recovered/Resolved]

NARRATIVE: CASE EVENT DATE: 20210729
